FAERS Safety Report 6192381-6 (Version None)
Quarter: 2009Q2

REPORT INFORMATION
  Report Type: 
  Country: None (occurrence: None)
  Receive Date: 20090518
  Receipt Date: 20090513
  Transmission Date: 20091009
  Serious: Yes (Hospitalization)
  Sender: FDA-Public Use
  Company Number: US-WYE-H08830809

PATIENT
  Sex: Male
  Weight: 49.9 kg

DRUGS (8)
  1. TEMSIROLIMUS [Suspect]
     Indication: MULTIPLE MYELOMA
     Route: 042
     Dates: start: 20090327, end: 20090327
  2. TEMSIROLIMUS [Suspect]
     Route: 042
     Dates: start: 20090417
  3. AMBIEN [Concomitant]
     Route: 048
  4. COUMADIN [Concomitant]
     Route: 048
  5. ATIVAN [Concomitant]
     Dosage: Q BEDTIME
     Route: 048
  6. BORTEZOMIB [Suspect]
     Indication: MULTIPLE MYELOMA
     Route: 042
     Dates: start: 20090327, end: 20090327
  7. BORTEZOMIB [Suspect]
     Route: 042
     Dates: start: 20090417
  8. LIPITOR [Concomitant]
     Route: 048

REACTIONS (1)
  - SMALL INTESTINAL OBSTRUCTION [None]
